FAERS Safety Report 5665305-5 (Version None)
Quarter: 2008Q1

REPORT INFORMATION
  Report Type: 
  Country: None (occurrence: None)
  Receive Date: 20080314
  Receipt Date: 20080103
  Transmission Date: 20080703
  Serious: Yes (Hospitalization)
  Sender: FDA-Public Use
  Company Number: US-ABBOTT-07P-163-0421003-00

PATIENT
  Sex: Male
  Weight: 81.266 kg

DRUGS (2)
  1. HUMIRA [Suspect]
     Indication: RHEUMATOID ARTHRITIS
     Route: 058
     Dates: start: 20070601, end: 20070901
  2. WARFARIN SODIUM [Concomitant]
     Indication: THROMBOSIS
     Route: 048
     Dates: start: 20060501

REACTIONS (1)
  - MYOCARDIAL INFARCTION [None]
